FAERS Safety Report 21964990 (Version 2)
Quarter: 2023Q2

REPORT INFORMATION
  Report Type: Spontaneous
  Country: US (occurrence: US)
  Receive Date: 20230207
  Receipt Date: 20230508
  Transmission Date: 20230722
  Serious: Yes (Hospitalization)
  Sender: FDA-Public Use
  Company Number: US-STRIDES ARCOLAB LIMITED-2023SP001802

PATIENT
  Age: 9 Decade
  Sex: Female

DRUGS (7)
  1. VERAPAMIL [Interacting]
     Active Substance: VERAPAMIL HYDROCHLORIDE
     Indication: Hypertension
     Dosage: 240 MILLIGRAM (EXTENDED-RELEASE)
     Route: 065
  2. PAXLOVID [Interacting]
     Active Substance: NIRMATRELVIR\RITONAVIR
     Indication: COVID-19
     Dosage: UNK
     Route: 065
  3. HYDROCHLOROTHIAZIDE [Concomitant]
     Active Substance: HYDROCHLOROTHIAZIDE
     Indication: Hypertension
     Dosage: 50 MILLIGRAM, UNKNOWN
     Route: 065
  4. METFORMIN [Concomitant]
     Active Substance: METFORMIN HYDROCHLORIDE
     Indication: Type 2 diabetes mellitus
     Dosage: UNK
     Route: 065
  5. COVID-19 vaccine [Concomitant]
     Indication: COVID-19 immunisation
     Dosage: UNK (PATIENT WAS FULLY VACCINATED AGAINST COVID-19 INCLUDING A BOOSTER DOSE)
     Route: 065
  6. COVID-19 vaccine [Concomitant]
     Dosage: UNK (PATIENT WAS FULLY VACCINATED AGAINST COVID-19 INCLUDING A BOOSTER DOSE)
     Route: 065
  7. COVID-19 vaccine [Concomitant]
     Dosage: UNK (PATIENT WAS FULLY VACCINATED AGAINST COVID-19 INCLUDING A BOOSTER DOSE)
     Route: 065

REACTIONS (11)
  - Drug interaction [Unknown]
  - Asthenia [Unknown]
  - Cardiogenic shock [Recovered/Resolved]
  - Sinus arrest [Recovered/Resolved]
  - Lethargy [Unknown]
  - Mental status changes [Unknown]
  - Electrocardiogram QRS complex prolonged [Recovered/Resolved]
  - Hyperglycaemia [Recovered/Resolved]
  - Metabolic acidosis [Recovered/Resolved]
  - Bradycardia [Recovered/Resolved]
  - Toxicity to various agents [Unknown]
